FAERS Safety Report 24673187 (Version 1)
Quarter: 2024Q4

REPORT INFORMATION
  Report Type: Spontaneous
  Country: US (occurrence: US)
  Receive Date: 20241128
  Receipt Date: 20241128
  Transmission Date: 20250115
  Serious: No
  Sender: IBSA INSTITUT BIOCHIMIQUE
  Company Number: US-IBSA PHARMA INC.-2024IBS000368

PATIENT

DRUGS (2)
  1. TIROSINT [Suspect]
     Active Substance: LEVOTHYROXINE SODIUM
     Indication: Hypothyroidism
     Dosage: 100 MICROGRAM
     Route: 065
  2. TIROSINT [Suspect]
     Active Substance: LEVOTHYROXINE SODIUM
     Dosage: 112 MICROGRAM
     Route: 065
     Dates: end: 202404

REACTIONS (5)
  - Psychomotor hyperactivity [Unknown]
  - Drug intolerance [Unknown]
  - Fatigue [Unknown]
  - Palpitations [Unknown]
  - Heart rate irregular [Unknown]
